FAERS Safety Report 7492589-3 (Version None)
Quarter: 2011Q2

REPORT INFORMATION
  Report Type: 
  Country: None (occurrence: None)
  Receive Date: 20110519
  Receipt Date: 20110511
  Transmission Date: 20111010
  Serious: Yes (Hospitalization)
  Sender: FDA-Public Use
  Company Number: CA-BAXTER-2011BH016073

PATIENT
  Age: 84 Year
  Sex: Male

DRUGS (4)
  1. DIANEAL [Suspect]
     Indication: PERITONEAL DIALYSIS
     Route: 033
  2. VALACYCLOVIR [Suspect]
     Indication: HERPES ZOSTER
     Route: 048
     Dates: start: 20110503, end: 20110501
  3. DIANEAL PD-1 [Suspect]
     Indication: PERITONEAL DIALYSIS
     Route: 033
  4. EXTRANEAL [Suspect]
     Indication: PERITONEAL DIALYSIS
     Route: 033

REACTIONS (7)
  - DRUG HYPERSENSITIVITY [None]
  - FEELING ABNORMAL [None]
  - HERPES ZOSTER [None]
  - HYPOTENSION [None]
  - HALLUCINATION [None]
  - TREMOR [None]
  - ASTHENIA [None]
